FAERS Safety Report 16914114 (Version 3)
Quarter: 2019Q4

REPORT INFORMATION
  Report Type: Spontaneous
  Country: US (occurrence: US)
  Receive Date: 20191014
  Receipt Date: 20191101
  Transmission Date: 20200122
  Serious: Yes (Death, Hospitalization)
  Sender: FDA-Public Use
  Company Number: US-MYLANLABS-2019M1094666

PATIENT
  Sex: Female
  Weight: 70 kg

DRUGS (2)
  1. CAPECITABINE TABLETS, USP [Suspect]
     Active Substance: CAPECITABINE
     Indication: BREAST CANCER METASTATIC
     Dosage: 1 DOSAGE FORM, BID
     Route: 048
  2. CAPECITABINE. [Concomitant]
     Active Substance: CAPECITABINE
     Dosage: UNK

REACTIONS (6)
  - Lip discolouration [Recovered/Resolved]
  - Dark circles under eyes [Recovered/Resolved]
  - Decreased appetite [Not Recovered/Not Resolved]
  - Lip swelling [Recovered/Resolved]
  - Death [Fatal]
  - Asthenia [Not Recovered/Not Resolved]

NARRATIVE: CASE EVENT DATE: 20190731
